FAERS Safety Report 4866337-7 (Version None)
Quarter: 2005Q4

REPORT INFORMATION
  Report Type: 
  Country: None (occurrence: None)
  Receive Date: 20051221
  Receipt Date: 20051208
  Transmission Date: 20060501
  Serious: Yes (Hospitalization, Other)
  Sender: FDA-Public Use
  Company Number: 2005167786

PATIENT
  Sex: Female
  Weight: 2.8577 kg

DRUGS (1)
  1. DILANTIN KAPSEAL [Suspect]
     Indication: CONVULSION
     Dosage: 500MG DAILY EXCEPT 600MG WED, FRI, SUN, ORAL
     Route: 048

REACTIONS (6)
  - ATTENTION DEFICIT/HYPERACTIVITY DISORDER [None]
  - CONVULSION NEONATAL [None]
  - DRUG EXPOSURE DURING PREGNANCY [None]
  - NEONATAL DISORDER [None]
  - RESPIRATORY RATE INCREASED [None]
  - VOMITING NEONATAL [None]
